FAERS Safety Report 7090170-1 (Version None)
Quarter: 2010Q4

REPORT INFORMATION
  Report Type: 
  Country: None (occurrence: None)
  Receive Date: 20101104
  Receipt Date: 20101104
  Transmission Date: 20110411
  Serious: Yes (Other)
  Sender: FDA-Public Use
  Company Number: None

PATIENT
  Age: 11 Month
  Sex: Female

DRUGS (2)
  1. TUBERSOL [Suspect]
     Dosage: LEFT THIGH
     Dates: start: 20081124
  2. TUBERSOL [Suspect]
     Dosage: LEFT THIGH
     Dates: start: 20081124

REACTIONS (1)
  - INCORRECT ROUTE OF DRUG ADMINISTRATION [None]
